FAERS Safety Report 14261695 (Version 13)
Quarter: 2023Q4

REPORT INFORMATION
  Report Type: Spontaneous
  Country: FR (occurrence: FR)
  Receive Date: 20171208
  Receipt Date: 20231222
  Transmission Date: 20240110
  Serious: Yes (Hospitalization, Other)
  Sender: FDA-Public Use
  Company Number: FR-AUROBINDO-AUR-APL-2015-05047

PATIENT
  Age: 34 Year
  Sex: Female

DRUGS (26)
  1. ASPIRIN [Suspect]
     Active Substance: ASPIRIN
     Indication: Product used for unknown indication
     Dosage: UNK
     Route: 065
  2. KETOPROFEN [Suspect]
     Active Substance: KETOPROFEN
     Indication: Analgesic therapy
     Dosage: 200 MILLIGRAM, ONCE A DAY
     Route: 048
  3. KETOPROFEN [Suspect]
     Active Substance: KETOPROFEN
     Indication: Pain
     Dosage: 50 MILLIGRAM, FOUR TIMES/DAY
     Route: 048
  4. LIDOCAINE [Suspect]
     Active Substance: LIDOCAINE
     Indication: Epidural anaesthesia
     Dosage: 15 ML, 1 TOTAL
     Route: 008
  5. LIDOCAINE [Suspect]
     Active Substance: LIDOCAINE
     Indication: Spinal pain
     Dosage: 20 MILLIGRAM PER MILLILETER
     Route: 065
  6. LIDOCAINE [Suspect]
     Active Substance: LIDOCAINE
     Indication: Anaesthesia
     Dosage: 300 MILLIGRAM TOTAL
     Route: 008
  7. ACETAMINOPHEN [Suspect]
     Active Substance: ACETAMINOPHEN
     Indication: Analgesic therapy
     Dosage: 4 GRAM, ONCE A DAY
     Route: 048
  8. ACETAMINOPHEN [Suspect]
     Active Substance: ACETAMINOPHEN
     Dosage: 16 GRAM, ONCE A DAY
     Route: 048
  9. ACETAMINOPHEN [Suspect]
     Active Substance: ACETAMINOPHEN
     Dosage: 1 GRAM, FOUR TIMES/DAY
     Route: 048
  10. EPINEPHRINE [Suspect]
     Active Substance: EPINEPHRINE
     Indication: Epidural analgesia
     Dosage: 2 MILLIGRAM, DAILY
     Route: 008
  11. EPINEPHRINE [Suspect]
     Active Substance: EPINEPHRINE
     Indication: Anaesthesia
     Dosage: 1 DOSAGE FORM
     Route: 008
  12. ENOXAPARIN [Suspect]
     Active Substance: ENOXAPARIN
     Indication: Embolism venous
     Dosage: 40 MILLIGRAM, ONCE A DAY
     Route: 058
  13. ENOXAPARIN [Suspect]
     Active Substance: ENOXAPARIN
     Indication: Thrombosis prophylaxis
  14. MORPHINE [Suspect]
     Active Substance: MORPHINE
     Indication: Epidural analgesia
     Dosage: 2 MILLIGRAM, FOUR TIMES/DAY
     Route: 008
  15. MORPHINE [Suspect]
     Active Substance: MORPHINE
     Indication: Analgesic therapy
     Dosage: 8 MILLIGRAM, ONCE A DAY
     Route: 008
  16. NEFOPAM [Suspect]
     Active Substance: NEFOPAM
     Indication: Analgesic therapy
     Dosage: 160 MILLIGRAM, ONCE A DAY
     Route: 065
  17. NEFOPAM [Suspect]
     Active Substance: NEFOPAM
     Indication: Anaesthesia
     Dosage: 40 MILLIGRAM, FOUR TIMES/DAY
     Route: 048
  18. ROPIVACAINE [Suspect]
     Active Substance: ROPIVACAINE
     Indication: Epidural analgesia
     Dosage: 20 MILLILITER, TOTAL
     Route: 008
  19. ROPIVACAINE [Suspect]
     Active Substance: ROPIVACAINE
     Indication: Spinal pain
     Dosage: ONE SLOW AND SPLIT INJECTION
     Route: 008
  20. ROPIVACAINE [Suspect]
     Active Substance: ROPIVACAINE
     Indication: Anaesthesia
     Dosage: 1 MILLIGRAM PER MILLILETER
     Route: 008
  21. ROPIVACAINE [Suspect]
     Active Substance: ROPIVACAINE
     Dosage: 15 MILLILITER, UNK
     Route: 065
  22. SUFENTANIL [Suspect]
     Active Substance: SUFENTANIL
     Indication: Epidural analgesia
     Dosage: 0.25 MILLIGRAM
     Route: 008
  23. SUFENTANIL [Suspect]
     Active Substance: SUFENTANIL
     Indication: Anaesthesia
     Dosage: 1 MILLIGRAM PER MILLILETER
     Route: 008
  24. SUFENTANIL [Suspect]
     Active Substance: SUFENTANIL
     Indication: Spinal pain
     Dosage: ONE SLOW AND SPLIT INJECTION
     Route: 008
  25. SUFENTANIL [Suspect]
     Active Substance: SUFENTANIL
     Dosage: 5 MICROGRAM
     Route: 008
  26. EPINEPHRINE [Suspect]
     Active Substance: EPINEPHRINE
     Indication: Anaesthesia
     Dosage: 15 MILLILITER
     Route: 008

REACTIONS (14)
  - Epistaxis [Unknown]
  - Foetal heart rate abnormal [Unknown]
  - Maternal exposure during pregnancy [Recovered/Resolved]
  - Nervous system disorder [Recovered/Resolved]
  - Epidural analgesia [Recovering/Resolving]
  - Spinal epidural haemorrhage [Recovered/Resolved]
  - Gait disturbance [Recovered/Resolved]
  - Paraesthesia [Recovered/Resolved]
  - Neuropathy peripheral [Recovered/Resolved]
  - Peripheral nerve injury [Recovered/Resolved]
  - Epidural haemorrhage [Recovered/Resolved]
  - Live birth [Unknown]
  - Product use issue [Unknown]
  - Exposure during pregnancy [Unknown]
